FAERS Safety Report 7243616-X (Version None)
Quarter: 2011Q1

REPORT INFORMATION
  Report Type: 
  Country: None (occurrence: None)
  Receive Date: 20110125
  Receipt Date: 20110114
  Transmission Date: 20110831
  Serious: Yes (Hospitalization)
  Sender: FDA-Public Use
  Company Number: PHHY2011ES02716

PATIENT
  Age: 50 Year
  Sex: Male

DRUGS (2)
  1. SINERGINA [Concomitant]
     Dosage: 400 MG DAILY
     Route: 048
     Dates: start: 20100814, end: 20100819
  2. TEGRETOL [Suspect]
     Dosage: 1600 MG DAILY
     Route: 048
     Dates: start: 20100814, end: 20100819

REACTIONS (1)
  - CARDIAC ARREST [None]
